FAERS Safety Report 7135037-5 (Version None)
Quarter: 2010Q4

REPORT INFORMATION
  Report Type: 
  Country: None (occurrence: None)
  Receive Date: 20101203
  Receipt Date: 20101111
  Transmission Date: 20110411
  Serious: No
  Sender: FDA-Public Use
  Company Number: US-B.I. PHARMACEUTICALS,INC./RIDGEFIELD-2010-BP-12767BP

PATIENT
  Sex: Female

DRUGS (1)
  1. COMBIVENT [Suspect]
     Indication: ASTHMA
     Dosage: 10 PUF
     Route: 055
     Dates: start: 20040101

REACTIONS (4)
  - DYSGEUSIA [None]
  - GLOSSODYNIA [None]
  - LUNG INFECTION [None]
  - PRODUCTIVE COUGH [None]
